FAERS Safety Report 15849506 (Version 1)
Quarter: 2019Q1

REPORT INFORMATION
  Report Type: Spontaneous
  Country: US (occurrence: US)
  Receive Date: 20190121
  Receipt Date: 20190121
  Transmission Date: 20190417
  Serious: No
  Sender: FDA-Public Use
  Company Number: US-LANNETT COMPANY, INC.-US-2018LAN001316

PATIENT

DRUGS (1)
  1. DOXYCYCLINE. [Suspect]
     Active Substance: DOXYCYCLINE
     Indication: INFECTION
     Dosage: 100 MG, UNK
     Route: 048
     Dates: start: 20181030

REACTIONS (2)
  - Nasal congestion [Unknown]
  - Wheezing [Unknown]

NARRATIVE: CASE EVENT DATE: 20181102
